FAERS Safety Report 7247378-1 (Version None)
Quarter: 2011Q1

REPORT INFORMATION
  Report Type: 
  Country: None (occurrence: None)
  Receive Date: 20110127
  Receipt Date: 20110117
  Transmission Date: 20110831
  Serious: Yes (Hospitalization, Other)
  Sender: FDA-Public Use
  Company Number: PHHY2010US86588

PATIENT
  Sex: Female

DRUGS (11)
  1. HYDROCODONE [Concomitant]
     Dosage: 5 MG, Q12H
  2. TOPAMAX [Concomitant]
     Dosage: 50 MG, BID
  3. NAPROXEN [Concomitant]
     Dosage: 500 MG, PRN
  4. DEPO-PROVERA [Concomitant]
     Dosage: SHOT EVERY 3 MONTHS
  5. EXTAVIA [Suspect]
     Dosage: 0.75 ML, QOD
     Route: 058
  6. ADVIL LIQUI-GELS [Concomitant]
  7. SINGULAIR [Concomitant]
     Dosage: 10 MG, QD
  8. KLONOPIN [Concomitant]
     Dosage: 0.5 MG, Q4-6H
  9. MULTI-VITAMINS [Concomitant]
     Dosage: UNK
  10. ZOLOFT [Concomitant]
     Dosage: 100 MG, BID
  11. EXTAVIA [Suspect]
     Indication: MULTIPLE SCLEROSIS
     Dosage: 0.187 MG, QOD
     Route: 058
     Dates: start: 20100801

REACTIONS (12)
  - NAUSEA [None]
  - CHILLS [None]
  - ABDOMINAL PAIN [None]
  - PHOTOPHOBIA [None]
  - INJECTION SITE PAIN [None]
  - VIRAL INFECTION [None]
  - MULTIPLE SCLEROSIS RELAPSE [None]
  - PYREXIA [None]
  - MIGRAINE [None]
  - INJECTION SITE ERYTHEMA [None]
  - MUSCLE SPASMS [None]
  - PAIN [None]
